FAERS Safety Report 25789208 (Version 4)
Quarter: 2025Q4

REPORT INFORMATION
  Report Type: Spontaneous
  Country: AU (occurrence: AU)
  Receive Date: 20250911
  Receipt Date: 20251103
  Transmission Date: 20260117
  Serious: Yes (Other)
  Sender: SANDOZ
  Company Number: AU-002147023-NVSC2025AU135635

PATIENT
  Sex: Female

DRUGS (2)
  1. METHYLPHENIDATE [Suspect]
     Active Substance: METHYLPHENIDATE
     Indication: Product used for unknown indication
     Dosage: UNK
     Route: 065
  2. RITALIN [Suspect]
     Active Substance: METHYLPHENIDATE HYDROCHLORIDE
     Indication: Attention deficit hyperactivity disorder
     Dosage: UNK
     Route: 065

REACTIONS (21)
  - Malaise [Unknown]
  - Fatigue [Unknown]
  - Coordination abnormal [Unknown]
  - Cognitive disorder [Unknown]
  - Dysarthria [Unknown]
  - Defaecation urgency [Unknown]
  - Oropharyngeal discomfort [Unknown]
  - Somnolence [Unknown]
  - Eye irritation [Unknown]
  - Nasal discomfort [Unknown]
  - Throat irritation [Unknown]
  - Disturbance in attention [Unknown]
  - Chest pain [Unknown]
  - Abdominal discomfort [Unknown]
  - Insomnia [Unknown]
  - Product blister packaging issue [Unknown]
  - Product use issue [Unknown]
  - Suspected product tampering [Unknown]
  - Product taste abnormal [Unknown]
  - Suspected counterfeit product [Unknown]
  - Product odour abnormal [Unknown]
